FAERS Safety Report 16690611 (Version 1)
Quarter: 2019Q3

REPORT INFORMATION
  Report Type: Spontaneous
  Country: US (occurrence: US)
  Receive Date: 20190624
  Receipt Date: 20190624
  Transmission Date: 20191004
  Serious: Yes (Death, Life-Threatening, Hospitalization, Disabling, Congenital Anomaly, Other)
  Sender: FDA-Public Use
  Company Number: None

PATIENT
  Age: 62 Year
  Sex: Female
  Weight: 54.43 kg

DRUGS (7)
  1. VITAMIN C [Concomitant]
     Active Substance: ASCORBIC ACID
  2. VITAMIN D [Concomitant]
     Active Substance: VITAMIN D NOS
  3. HALDOL [Suspect]
     Active Substance: HALOPERIDOL
     Indication: ABNORMAL BEHAVIOUR
     Route: 048
  4. RESPIDAL [Concomitant]
  5. EAR WAX REMOVAL KIT (HOMEOPATHIC) [Concomitant]
     Active Substance: HOMEOPATHICS
  6. CALPHIST [Concomitant]
  7. CENTRUM CHEWABLE TABLETS [Concomitant]

REACTIONS (6)
  - Insomnia [None]
  - Motor dysfunction [None]
  - Unevaluable event [None]
  - Blindness transient [None]
  - Memory impairment [None]
  - Paralysis [None]
